FAERS Safety Report 4894532-X (Version None)
Quarter: 2006Q1

REPORT INFORMATION
  Report Type: 
  Country: None (occurrence: None)
  Receive Date: 20060127
  Receipt Date: 20060124
  Transmission Date: 20060701
  Serious: Yes (Other)
  Sender: FDA-Public Use
  Company Number: US-MERCK-0601USA02848

PATIENT
  Age: 55 Year
  Sex: Female

DRUGS (2)
  1. FOSAMAX [Suspect]
     Indication: OSTEOPOROSIS
     Route: 048
     Dates: start: 20040101, end: 20050101
  2. SODIUM FLUORIDE [Suspect]
     Route: 065

REACTIONS (4)
  - CALCINOSIS [None]
  - DENTAL CARIES [None]
  - HYPERSENSITIVITY [None]
  - IMPAIRED HEALING [None]
